FAERS Safety Report 9300361 (Version 2)
Quarter: 2013Q3

REPORT INFORMATION
  Report Type: Spontaneous
  Country: JP (occurrence: JP)
  Receive Date: 20130521
  Receipt Date: 20130716
  Transmission Date: 20140515
  Serious: Yes (Hospitalization)
  Sender: FDA-Public Use
  Company Number: JP-JNJFOC-20130510441

PATIENT
  Age: 68 Year
  Sex: Male
  Weight: 60 kg

DRUGS (9)
  1. REMICADE [Suspect]
     Indication: PSORIASIS
     Dosage: 1ST DOSE
     Route: 042
     Dates: start: 20100408
  2. REMICADE [Suspect]
     Indication: PSORIASIS
     Dosage: 2ND DOSE
     Route: 042
     Dates: start: 20100422
  3. REMICADE [Suspect]
     Indication: PSORIASIS
     Dosage: 3RD DOSE
     Route: 042
     Dates: start: 20100520
  4. SANDIMMUNE [Suspect]
     Indication: PRODUCT USED FOR UNKNOWN INDICATION
     Route: 065
     Dates: start: 20040213, end: 20110709
  5. DERMOVATE [Concomitant]
     Indication: PSORIASIS
     Route: 065
     Dates: start: 20040303
  6. ANTEBATE [Concomitant]
     Indication: PSORIASIS
     Route: 065
     Dates: start: 20040303
  7. OXAROL [Concomitant]
     Indication: PSORIASIS
     Route: 065
     Dates: start: 20040303
  8. URSO [Concomitant]
     Indication: HYPERLIPIDAEMIA
     Route: 048
     Dates: start: 20051207
  9. ISCOTIN [Concomitant]
     Indication: ANTIBIOTIC PROPHYLAXIS
     Route: 065
     Dates: start: 20100318, end: 20100715

REACTIONS (2)
  - Oesophageal carcinoma [Recovered/Resolved]
  - Eczema [Recovering/Resolving]
